FAERS Safety Report 25598354 (Version 1)
Quarter: 2025Q3

REPORT INFORMATION
  Report Type: Spontaneous
  Country: US (occurrence: US)
  Receive Date: 20250723
  Receipt Date: 20250723
  Transmission Date: 20251021
  Serious: No
  Sender: INCYTE
  Company Number: US-EVENT-003609

PATIENT
  Age: 66 Year

DRUGS (3)
  1. JAKAFI [Suspect]
     Active Substance: RUXOLITINIB
     Indication: Product used for unknown indication
     Route: 065
  2. RECORLEV [Concomitant]
     Active Substance: LEVOKETOCONAZOLE
     Indication: Cushing^s syndrome
     Dosage: 150 MILLIGRAM, QD
     Route: 065
  3. RECORLEV [Concomitant]
     Active Substance: LEVOKETOCONAZOLE
     Dosage: 150 MILLIGRAM, QD
     Route: 065

REACTIONS (14)
  - Weight increased [Unknown]
  - Blood cholesterol increased [Unknown]
  - Feeling jittery [Recovered/Resolved]
  - Dehydration [Recovered/Resolved]
  - Tinnitus [Recovered/Resolved]
  - Malaise [Recovered/Resolved]
  - Brain fog [Unknown]
  - Tremor [Recovered/Resolved]
  - Blood triglycerides increased [Unknown]
  - Blood pressure increased [Recovered/Resolved]
  - Dizziness [Not Recovered/Not Resolved]
  - Fatigue [Recovered/Resolved]
  - Nausea [Recovered/Resolved]
  - Headache [Recovered/Resolved]
